FAERS Safety Report 13510240 (Version 4)
Quarter: 2017Q3

REPORT INFORMATION
  Report Type: Spontaneous
  Country: US (occurrence: US)
  Receive Date: 20170503
  Receipt Date: 20170705
  Transmission Date: 20171127
  Serious: Yes (Hospitalization)
  Sender: FDA-Public Use
  Company Number: US-CELGENEUS-USA-20170409936

PATIENT
  Sex: Male

DRUGS (2)
  1. POMALYST [Suspect]
     Active Substance: POMALIDOMIDE
     Indication: PLASMA CELL MYELOMA
     Dosage: TAKE 1 CAPSULE BY MOUTH AFTER DIALYSIS ON TUESDAY, THURSDAY AND SATURDAY ONLY.
     Route: 048
     Dates: start: 201702
  2. POMALYST [Suspect]
     Active Substance: POMALIDOMIDE
     Indication: ANAEMIA
     Dosage: 4 MILLIGRAM
     Route: 048
     Dates: start: 20160107

REACTIONS (3)
  - Fall [Unknown]
  - Rib fracture [Unknown]
  - Asthenia [Unknown]
